FAERS Safety Report 4850335-3 (Version None)
Quarter: 2005Q4

REPORT INFORMATION
  Report Type: 
  Country: None (occurrence: None)
  Receive Date: 20051123
  Receipt Date: 20051024
  Transmission Date: 20060501
  Serious: No
  Sender: FDA-Public Use
  Company Number: 218851

PATIENT
  Age: 60 Year
  Sex: Female

DRUGS (3)
  1. RAPTIVA [Suspect]
     Indication: PSORIASIS
     Dates: start: 20051004
  2. DOVONEX [Concomitant]
  3. ULTRAVATE (HALOBETASOL PROPIONATE) [Concomitant]

REACTIONS (2)
  - GUTTATE PSORIASIS [None]
  - PSORIASIS [None]
